FAERS Safety Report 5953372-0 (Version None)
Quarter: 2008Q4

REPORT INFORMATION
  Report Type: 
  Country: None (occurrence: None)
  Receive Date: 20081031
  Receipt Date: 20080407
  Transmission Date: 20090506
  Serious: Yes (Other)
  Sender: FDA-Public Use
  Company Number: US-WYE-H03513408

PATIENT
  Age: 86 Year
  Sex: Female

DRUGS (5)
  1. PREMARIN [Suspect]
     Indication: MENOPAUSE
     Dosage: 0.625MG; FREQUENCY UNKNOWN, VAGINAL ; 1 APPLCIATOR 3X PER 1 WK, VAGINAL
     Route: 067
     Dates: start: 19680101, end: 20060101
  2. PREMARIN [Suspect]
     Indication: MENOPAUSE
     Dosage: 0.625MG; FREQUENCY UNKNOWN, VAGINAL ; 1 APPLCIATOR 3X PER 1 WK, VAGINAL
     Route: 067
     Dates: start: 20080101
  3. SYNTHROID [Concomitant]
  4. NEXIUM [Concomitant]
  5. AMLODIPINE BESYLATE [Concomitant]

REACTIONS (1)
  - URINARY TRACT INFECTION [None]
